FAERS Safety Report 5542170-8 (Version None)
Quarter: 2007Q4

REPORT INFORMATION
  Report Type: 
  Country: None (occurrence: None)
  Receive Date: 20071129
  Receipt Date: 20070412
  Transmission Date: 20080405
  Serious: Yes (Hospitalization)
  Sender: FDA-Public Use
  Company Number: US200704002813

PATIENT
  Age: 44 Year
  Sex: Female

DRUGS (2)
  1. ZYPREXA [Suspect]
     Dosage: 2.5 , ORAL
     Route: 048
     Dates: start: 20070314, end: 20070405
  2. SYMBYAX [Suspect]
     Dosage: D/F, ORAL
     Route: 048
     Dates: start: 20060801

REACTIONS (1)
  - CONVULSION [None]
